FAERS Safety Report 14827763 (Version 1)
Quarter: 2018Q2

REPORT INFORMATION
  Report Type: Spontaneous
  Country: US (occurrence: US)
  Receive Date: 20180406
  Receipt Date: 20180406
  Transmission Date: 20180711
  Serious: No
  Sender: FDA-Public Use
  Company Number: None

PATIENT
  Sex: Female

DRUGS (1)
  1. SIMVASTATIN 40MG [Suspect]
     Active Substance: SIMVASTATIN

REACTIONS (2)
  - Nausea [None]
  - Vomiting [None]
